FAERS Safety Report 15925485 (Version 2)
Quarter: 2019Q1

REPORT INFORMATION
  Report Type: Spontaneous
  Country: US (occurrence: US)
  Receive Date: 20190206
  Receipt Date: 20190218
  Transmission Date: 20190417
  Serious: No
  Sender: FDA-Public Use
  Company Number: US-PFIZER INC-2019053260

PATIENT
  Age: 61 Year
  Sex: Female

DRUGS (1)
  1. BOSULIF [Suspect]
     Active Substance: BOSUTINIB MONOHYDRATE
     Indication: CHRONIC MYELOID LEUKAEMIA
     Dosage: 400 MG, 1X/DAY (Q PM)
     Dates: start: 20190124

REACTIONS (5)
  - Nausea [Unknown]
  - Blood potassium decreased [Unknown]
  - Pruritus [Unknown]
  - Diarrhoea [Unknown]
  - Decreased appetite [Unknown]
